FAERS Safety Report 5184220-7 (Version None)
Quarter: 2006Q4

REPORT INFORMATION
  Report Type: 
  Country: None (occurrence: None)
  Receive Date: 20061220
  Receipt Date: 20060214
  Transmission Date: 20070319
  Serious: No
  Sender: FDA-Public Use
  Company Number: US-GLAXOSMITHKLINE-A0594141A

PATIENT
  Sex: Male

DRUGS (1)
  1. EQUATE NTS 14MG [Suspect]
     Indication: DRUG USE FOR UNKNOWN INDICATION

REACTIONS (3)
  - DISCOMFORT [None]
  - DIZZINESS [None]
  - PRURITUS [None]
